FAERS Safety Report 5721884-0 (Version None)
Quarter: 2008Q2

REPORT INFORMATION
  Report Type: 
  Country: None (occurrence: None)
  Receive Date: 20080429
  Receipt Date: 20080418
  Transmission Date: 20081010
  Serious: Yes (Hospitalization, Other)
  Sender: FDA-Public Use
  Company Number: GB-PFIZER INC-2008035012

PATIENT
  Age: 84 Year
  Sex: Male

DRUGS (11)
  1. TOLTERODINE TARTRATE [Suspect]
     Route: 048
  2. LISINOPRIL [Suspect]
     Indication: HYPERTENSION
     Route: 048
     Dates: start: 20071227, end: 20080402
  3. ACETYLCYSTEINE [Concomitant]
  4. DOXAZOSIN MESYLATE [Concomitant]
     Route: 048
  5. FERROUS SULFATE TAB [Concomitant]
  6. FINASTERIDE [Concomitant]
     Route: 048
  7. NITROFURANTOIN [Concomitant]
  8. TAMSULOSIN HCL [Concomitant]
     Route: 048
  9. TIMOPTIC [Concomitant]
  10. VISCOTEARS [Concomitant]
  11. XALATAN [Concomitant]

REACTIONS (2)
  - ANGIOEDEMA [None]
  - SWOLLEN TONGUE [None]
